FAERS Safety Report 19498199 (Version 1)
Quarter: 2021Q3

REPORT INFORMATION
  Report Type: Report from Study
  Country: US (occurrence: US)
  Receive Date: 20210706
  Receipt Date: 20210706
  Transmission Date: 20211014
  Serious: Yes (Hospitalization)
  Sender: FDA-Public Use
  Company Number: US-JNJFOC-20210700734

PATIENT
  Age: 70 Year
  Sex: Female
  Weight: 92.3 kg

DRUGS (2)
  1. OXYGEN. [Concomitant]
     Active Substance: OXYGEN
  2. SELEXIPAG [Suspect]
     Active Substance: SELEXIPAG
     Indication: PULMONARY ARTERIAL HYPERTENSION
     Route: 048

REACTIONS (3)
  - Rhinorrhoea [Unknown]
  - Respiratory tract congestion [Unknown]
  - Gastric disorder [Unknown]

NARRATIVE: CASE EVENT DATE: 202106
